FAERS Safety Report 4350785-8 (Version None)
Quarter: 2004Q2

REPORT INFORMATION
  Report Type: 
  Country: None (occurrence: None)
  Receive Date: 20040430
  Receipt Date: 20040316
  Transmission Date: 20050107
  Serious: Yes (Hospitalization)
  Sender: FDA-Public Use
  Company Number: US-ROCHE-361754

PATIENT
  Age: 73 Year
  Sex: Male
  Weight: 96 kg

DRUGS (2)
  1. CAPECITABINE [Suspect]
     Dosage: FROM DAY 1 TO DAY 14 WITH ONE WEEK REST.  THE PATIENT HAD RECEIVED A CUMULATIVE DOSE OF 25200 MG.
     Route: 048
     Dates: start: 20040123
  2. OXALIPLATIN [Suspect]
     Dosage: THE PATIENT HAD RECEIVED A CUMULATIVE DOSE OF 290 MG.
     Route: 042
     Dates: start: 20040123

REACTIONS (5)
  - ANOREXIA [None]
  - INTESTINAL ISCHAEMIA [None]
  - NAUSEA [None]
  - RETCHING [None]
  - VOMITING [None]
